FAERS Safety Report 14783763 (Version 1)
Quarter: 2018Q2

REPORT INFORMATION
  Report Type: Spontaneous
  Country: US (occurrence: US)
  Receive Date: 20180413
  Receipt Date: 20180413
  Transmission Date: 20180711
  Serious: Yes (Disabling)
  Sender: FDA-Public Use
  Company Number: None

PATIENT
  Age: 53 Year
  Sex: Female
  Weight: 76.5 kg

DRUGS (5)
  1. PANTOPRAZOLE 40 MG [Suspect]
     Active Substance: PANTOPRAZOLE SODIUM
     Indication: DYSPEPSIA
     Route: 048
     Dates: start: 20000101, end: 20180412
  2. PANTOPRAZOLE 40 MG [Suspect]
     Active Substance: PANTOPRAZOLE SODIUM
     Indication: GASTROOESOPHAGEAL REFLUX DISEASE
     Route: 048
     Dates: start: 20000101, end: 20180412
  3. VITAMIN D [Concomitant]
     Active Substance: CHOLECALCIFEROL
  4. LINZESS [Concomitant]
     Active Substance: LINACLOTIDE
  5. WELLBUTRIN [Concomitant]
     Active Substance: BUPROPION HYDROCHLORIDE

REACTIONS (10)
  - Constipation [None]
  - Diarrhoea [None]
  - Vomiting [None]
  - Flatulence [None]
  - Abdominal distension [None]
  - Abdominal pain upper [None]
  - Lymphoedema [None]
  - Melaena [None]
  - Gastric disorder [None]
  - Tremor [None]
